FAERS Safety Report 5196633-8 (Version None)
Quarter: 2007Q1

REPORT INFORMATION
  Report Type: 
  Country: None (occurrence: None)
  Receive Date: 20070103
  Receipt Date: 20061227
  Transmission Date: 20070707
  Serious: Yes (Hospitalization)
  Sender: FDA-Public Use
  Company Number: CA-JNJFOC-20061206768

PATIENT
  Sex: Male

DRUGS (3)
  1. REMICADE [Suspect]
     Route: 042
  2. REMICADE [Suspect]
     Indication: CROHN'S DISEASE
     Route: 042
  3. SOLU-MEDROL [Concomitant]
     Indication: PREMEDICATION
     Route: 042

REACTIONS (3)
  - PAIN [None]
  - PYREXIA [None]
  - WHITE BLOOD CELL COUNT INCREASED [None]
